FAERS Safety Report 22630169 (Version 1)
Quarter: 2023Q2

REPORT INFORMATION
  Report Type: Report from Study
  Country: ES (occurrence: ES)
  Receive Date: 20230622
  Receipt Date: 20230622
  Transmission Date: 20230721
  Serious: Yes (Other)
  Sender: FDA-Public Use
  Company Number: ES-TAKEDA-2023TUS060853

PATIENT
  Age: 43 Year
  Sex: Female

DRUGS (6)
  1. TEDUGLUTIDE [Suspect]
     Active Substance: TEDUGLUTIDE
     Indication: Short-bowel syndrome
     Dosage: 2.71 MILLIGRAM, QD
     Route: 042
     Dates: start: 20180507, end: 20190918
  2. TEDUGLUTIDE [Suspect]
     Active Substance: TEDUGLUTIDE
     Indication: Short-bowel syndrome
     Dosage: 2.71 MILLIGRAM, QD
     Route: 042
     Dates: start: 20180507, end: 20190918
  3. TEDUGLUTIDE [Suspect]
     Active Substance: TEDUGLUTIDE
     Indication: Short-bowel syndrome
     Dosage: 2.71 MILLIGRAM, QD
     Route: 042
     Dates: start: 20180507, end: 20190918
  4. TEDUGLUTIDE [Suspect]
     Active Substance: TEDUGLUTIDE
     Indication: Short-bowel syndrome
     Dosage: 2.71 MILLIGRAM, QD
     Route: 042
     Dates: start: 20180507, end: 20190918
  5. HIDROFEROL CHOQUE [Concomitant]
     Indication: Short-bowel syndrome
     Dosage: 3 MILLIGRAM, 1/WEEK
     Route: 048
     Dates: start: 20221219, end: 20230601
  6. HIDROFEROL CHOQUE [Concomitant]
     Dosage: 3 MILLIGRAM, 2/WEEK
     Route: 048
     Dates: start: 20230601

REACTIONS (1)
  - Ascites [Recovered/Resolved]

NARRATIVE: CASE EVENT DATE: 20210513
